FAERS Safety Report 12808688 (Version 2)
Quarter: 2016Q4

REPORT INFORMATION
  Report Type: Spontaneous
  Country: US (occurrence: US)
  Receive Date: 20161004
  Receipt Date: 20161117
  Transmission Date: 20170207
  Serious: Yes (Other)
  Sender: FDA-Public Use
  Company Number: US-BAYER-2016-190608

PATIENT
  Age: 25 Year
  Sex: Female

DRUGS (1)
  1. KOGENATE FS [Suspect]
     Active Substance: ANTIHEMOPHILIC FACTOR, HUMAN RECOMBINANT
     Indication: FACTOR VIII DEFICIENCY
     Dosage: 4000 UNITS EVERY OTHER DAY
     Route: 042

REACTIONS (7)
  - Nerve compression [None]
  - Drug dose omission [None]
  - Haemophilic arthropathy [None]
  - Haemarthrosis [None]
  - Haemarthrosis [None]
  - Pain [None]
  - Asthenia [None]

NARRATIVE: CASE EVENT DATE: 2016
